FAERS Safety Report 10022703 (Version 4)
Quarter: 2015Q1

REPORT INFORMATION
  Report Type: Spontaneous
  Country: FR (occurrence: FR)
  Receive Date: 20140319
  Receipt Date: 20150319
  Transmission Date: 20150720
  Serious: Yes (Hospitalization, Other)
  Sender: FDA-Public Use
  Company Number: FR-PFIZER INC-2014077277

PATIENT
  Age: 53 Year
  Sex: Male

DRUGS (5)
  1. TRAMADOL HYDROCHLORIDE. [Suspect]
     Active Substance: TRAMADOL HYDROCHLORIDE
     Indication: SCIATICA
     Dosage: 100 MG, 2X/DAY
     Route: 048
     Dates: start: 201211
  2. TRAMADOL HYDROCHLORIDE. [Suspect]
     Active Substance: TRAMADOL HYDROCHLORIDE
     Dosage: DOSE DECREASED
     Route: 048
     Dates: end: 20131219
  3. LYRICA [Suspect]
     Active Substance: PREGABALIN
     Indication: SCIATICA
     Dosage: 75 MG, 3X/DAY
     Route: 048
     Dates: start: 201211
  4. LYRICA [Suspect]
     Active Substance: PREGABALIN
     Dosage: 75 MG, 2X/DAY
     Route: 048
     Dates: end: 201312
  5. URBANYL [Concomitant]
     Active Substance: CLOBAZAM
     Dosage: UNK
     Dates: start: 201311, end: 201312

REACTIONS (2)
  - Epilepsy [Recovered/Resolved]
  - Epilepsy [Recovered/Resolved]

NARRATIVE: CASE EVENT DATE: 20131109
